FAERS Safety Report 8560089-5 (Version None)
Quarter: 2012Q3

REPORT INFORMATION
  Report Type: 
  Country: None (occurrence: None)
  Receive Date: 20120802
  Receipt Date: 20120725
  Transmission Date: 20120928
  Serious: No
  Sender: FDA-Public Use
  Company Number: US-B.I. PHARMACEUTICALS,INC./RIDGEFIELD-2012-BP-16537BP

PATIENT
  Sex: Male
  Weight: 85 kg

DRUGS (13)
  1. DUONEB [Concomitant]
     Dates: start: 20070101
  2. OXYGEN [Concomitant]
     Indication: CHRONIC OBSTRUCTIVE PULMONARY DISEASE
  3. FLUTICASONE PROPIONATE [Concomitant]
     Indication: CHRONIC OBSTRUCTIVE PULMONARY DISEASE
     Route: 055
     Dates: start: 20070101
  4. ZOCOR [Concomitant]
     Dates: start: 20101201
  5. SPIRIVA [Suspect]
     Indication: CHRONIC OBSTRUCTIVE PULMONARY DISEASE
     Dosage: 18 MCG
     Route: 055
     Dates: start: 20080101
  6. ISORDIL [Concomitant]
     Dates: start: 20070101
  7. SPIRIVA [Suspect]
     Route: 048
     Dates: start: 20120725, end: 20120725
  8. FORADIL [Concomitant]
     Dosage: 24 MCG
     Route: 055
     Dates: start: 20120101
  9. ALBUTEROL [Concomitant]
     Indication: CHRONIC OBSTRUCTIVE PULMONARY DISEASE
     Dosage: 90 MG
     Route: 055
     Dates: start: 20060101
  10. ASPIRIN [Concomitant]
     Indication: CARDIAC DISORDER
     Dosage: 325 MG
     Route: 048
     Dates: start: 20060101
  11. COREG [Concomitant]
     Indication: HYPERTENSION
     Dosage: 25 MG
     Route: 048
     Dates: start: 20060101
  12. LASIX [Concomitant]
     Dates: start: 20070101
  13. POTASSIUM [Concomitant]
     Dates: start: 20060101

REACTIONS (1)
  - INCORRECT ROUTE OF DRUG ADMINISTRATION [None]
